FAERS Safety Report 17078961 (Version 2)
Quarter: 2019Q4

REPORT INFORMATION
  Report Type: Spontaneous
  Country: NG (occurrence: NG)
  Receive Date: 20191127
  Receipt Date: 20191206
  Transmission Date: 20200122
  Serious: Yes (Death)
  Sender: FDA-Public Use
  Company Number: NG-ROCHE-2477252

PATIENT
  Sex: Female

DRUGS (6)
  1. HERCEPTIN [Suspect]
     Active Substance: TRASTUZUMAB
     Indication: BREAST CANCER
     Route: 065
  2. HERCEPTIN [Suspect]
     Active Substance: TRASTUZUMAB
     Indication: METASTASES TO SKIN
  3. PERJETA [Suspect]
     Active Substance: PERTUZUMAB
     Indication: BREAST CANCER
     Route: 065
  4. HERCEPTIN [Suspect]
     Active Substance: TRASTUZUMAB
     Indication: METASTASES TO CENTRAL NERVOUS SYSTEM
  5. PERJETA [Suspect]
     Active Substance: PERTUZUMAB
     Indication: METASTASES TO SKIN
  6. PERJETA [Suspect]
     Active Substance: PERTUZUMAB
     Indication: METASTASES TO CENTRAL NERVOUS SYSTEM

REACTIONS (1)
  - Death [Fatal]
